FAERS Safety Report 17684362 (Version 1)
Quarter: 2020Q2

REPORT INFORMATION
  Report Type: Report from Study
  Country: GF (occurrence: GF)
  Receive Date: 20200420
  Receipt Date: 20200420
  Transmission Date: 20200714
  Serious: Yes (Other)
  Sender: FDA-Public Use
  Company Number: GF-VIIV HEALTHCARE LIMITED-GF2020GSK065909

PATIENT

DRUGS (3)
  1. STAVUDINE. [Suspect]
     Active Substance: STAVUDINE
     Indication: HIV INFECTION
     Dosage: UNK
  2. LAMIVUDINE. [Suspect]
     Active Substance: LAMIVUDINE
     Indication: HIV INFECTION
     Dosage: UNK
  3. INDINAVIR [Suspect]
     Active Substance: INDINAVIR
     Indication: HIV INFECTION
     Dosage: UNK

REACTIONS (8)
  - Immune reconstitution inflammatory syndrome [Unknown]
  - Virologic failure [Unknown]
  - Histoplasmosis [Unknown]
  - Splenomegaly [Unknown]
  - Rash papular [Unknown]
  - Condition aggravated [Unknown]
  - Lymphadenopathy [Unknown]
  - Anaemia [Unknown]
